FAERS Safety Report 4765534-9 (Version None)
Quarter: 2005Q3

REPORT INFORMATION
  Report Type: 
  Country: None (occurrence: None)
  Receive Date: 20050908
  Receipt Date: 20050908
  Transmission Date: 20060218
  Serious: Yes (Life-Threatening)
  Sender: FDA-Public Use
  Company Number: None

PATIENT
  Age: 61 Year
  Sex: Female

DRUGS (2)
  1. BUPIVACAINE [Suspect]
     Indication: NERVE BLOCK
     Dosage: 30ML
  2. BUPIVACAINE [Suspect]
     Indication: SHOULDER OPERATION
     Dosage: 30ML

REACTIONS (6)
  - ARM AMPUTATION [None]
  - CARDIAC ARREST [None]
  - DRUG TOXICITY [None]
  - EXTREMITY NECROSIS [None]
  - LIMB INJURY [None]
  - PERIPHERAL ISCHAEMIA [None]
